FAERS Safety Report 26134136 (Version 1)
Quarter: 2025Q4

REPORT INFORMATION
  Report Type: Spontaneous
  Country: CN (occurrence: CN)
  Receive Date: 20251209
  Receipt Date: 20251209
  Transmission Date: 20260117
  Serious: Yes (Life-Threatening, Disabling, Other)
  Sender: SANOFI AVENTIS
  Company Number: CN-PFIZER INC-PV202300109478

PATIENT
  Age: 51 Year
  Sex: Male
  Weight: 51 kg

DRUGS (8)
  1. CEFTRIAXONE SODIUM [Suspect]
     Active Substance: CEFTRIAXONE SODIUM
     Indication: Streptococcal sepsis
     Dosage: 2 G, QD
     Route: 041
     Dates: start: 20230518, end: 20230603
  2. ISONIAZID [Suspect]
     Active Substance: ISONIAZID
     Indication: Pulmonary tuberculosis
     Dosage: 0.3 G, QD
     Route: 048
     Dates: start: 20230508, end: 20230510
  3. PYRAZINAMIDE [Suspect]
     Active Substance: PYRAZINAMIDE
     Indication: Pulmonary tuberculosis
     Dosage: 1.5 G, QD
     Route: 048
     Dates: start: 20230508, end: 20230510
  4. RIFAMPIN [Suspect]
     Active Substance: RIFAMPIN
     Indication: Pulmonary tuberculosis
     Dosage: 0.6 G, QD
     Route: 048
     Dates: start: 20230508, end: 20230510
  5. CEFOPERAZONE SODIUM\SULBACTAM SODIUM [Suspect]
     Active Substance: CEFOPERAZONE SODIUM\SULBACTAM SODIUM
     Indication: Anti-infective therapy
     Dosage: 6 G, QD
     Route: 041
     Dates: start: 20230602, end: 20230608
  6. ETHAMBUTOL HYDROCHLORIDE [Suspect]
     Active Substance: ETHAMBUTOL HYDROCHLORIDE
     Indication: Pulmonary tuberculosis
     Dosage: 1 G, 1X/DAY
     Route: 048
     Dates: start: 20230508, end: 20230510
  7. MOXIFLOXACIN HYDROCHLORIDE [Suspect]
     Active Substance: MOXIFLOXACIN HYDROCHLORIDE
     Indication: Streptococcal sepsis
     Dosage: 0.4 G, QD
     Route: 041
     Dates: start: 20230506, end: 20230522
  8. SODIUM CHLORIDE [Concomitant]
     Active Substance: SODIUM CHLORIDE
     Indication: Vehicle solution use
     Dosage: 100 ML, QD
     Route: 041
     Dates: start: 20230518, end: 20230603

REACTIONS (7)
  - Renal injury [Recovering/Resolving]
  - Hyperuricaemia [Recovering/Resolving]
  - Gastrointestinal disorder [Recovering/Resolving]
  - Rash [Recovering/Resolving]
  - Pruritus [Recovering/Resolving]
  - Platelet count decreased [Recovering/Resolving]
  - White blood cell count decreased [Recovering/Resolving]

NARRATIVE: CASE EVENT DATE: 20230609
